FAERS Safety Report 5710263-8 (Version None)
Quarter: 2008Q2

REPORT INFORMATION
  Report Type: 
  Country: None (occurrence: None)
  Receive Date: 20080418
  Receipt Date: 20080408
  Transmission Date: 20081010
  Serious: Yes (Other)
  Sender: FDA-Public Use
  Company Number: US-PFIZER INC-2008028681

PATIENT
  Sex: Female
  Weight: 99.8 kg

DRUGS (4)
  1. CHANTIX [Suspect]
     Indication: SMOKING CESSATION THERAPY
  2. LITHIUM CARBONATE [Concomitant]
  3. ALBUTEROL [Concomitant]
  4. COMBIVENT [Concomitant]

REACTIONS (6)
  - BREATH SOUNDS ABNORMAL [None]
  - DRUG DOSE OMISSION [None]
  - FLUID INTAKE REDUCED [None]
  - INTENTIONAL DRUG MISUSE [None]
  - PRURITUS [None]
  - SPUTUM DISCOLOURED [None]
